FAERS Safety Report 6486549-9 (Version None)
Quarter: 2009Q4

REPORT INFORMATION
  Report Type: 
  Country: None (occurrence: None)
  Receive Date: 20091210
  Receipt Date: 20091203
  Transmission Date: 20100525
  Serious: Yes (Hospitalization)
  Sender: FDA-Public Use
  Company Number: RU-BAYER-200941612GPV

PATIENT
  Age: 35 Year
  Sex: Female

DRUGS (1)
  1. BETAFERON [Suspect]
     Indication: MULTIPLE SCLEROSIS
     Route: 058
     Dates: start: 20081115, end: 20091125

REACTIONS (4)
  - BODY TEMPERATURE INCREASED [None]
  - CYSTITIS BACTERIAL [None]
  - DYSURIA [None]
  - URINARY RETENTION [None]
